FAERS Safety Report 17369355 (Version 1)
Quarter: 2020Q1

REPORT INFORMATION
  Report Type: Spontaneous
  Country: US (occurrence: US)
  Receive Date: 20200120
  Receipt Date: 20200120
  Transmission Date: 20200409
  Serious: No
  Sender: FDA-Public Use
  Company Number: None

PATIENT
  Sex: Female

DRUGS (7)
  1. PROGESTERONE. [Concomitant]
     Active Substance: PROGESTERONE
  2. ESTRADIOL TRANSDERMAL SYSTEM [Suspect]
     Active Substance: ESTRADIOL
     Indication: INFERTILITY FEMALE
     Dosage: ?          OTHER DOSE:1 PATCH;OTHER FREQUENCY:TID M-W-F;?
     Route: 062
     Dates: start: 20191214
  3. ISIBLOOM [Concomitant]
     Active Substance: DESOGESTREL\ETHINYL ESTRADIOL
  4. LEUPROLIDE [Concomitant]
     Active Substance: LEUPROLIDE
  5. PRENATAL [Concomitant]
     Active Substance: VITAMINS
  6. A-HYDROCORT [Concomitant]
     Active Substance: HYDROCORTISONE SODIUM SUCCINATE
  7. ESTRADIOL. [Concomitant]
     Active Substance: ESTRADIOL

REACTIONS (1)
  - Rash [None]
